FAERS Safety Report 14829153 (Version 1)
Quarter: 2018Q2

REPORT INFORMATION
  Report Type: Spontaneous
  Country: CO (occurrence: CO)
  Receive Date: 20180430
  Receipt Date: 20180430
  Transmission Date: 20180711
  Serious: Yes (Other)
  Sender: FDA-Public Use
  Company Number: CO-AMGEN-COLSP2018056229

PATIENT
  Age: 56 Year
  Sex: Male

DRUGS (8)
  1. BLINCYTO [Suspect]
     Active Substance: BLINATUMOMAB
     Dosage: 9 MCG, QD (WEEK 2, 10ML/HR FOR 24 HOUR)
     Route: 065
     Dates: start: 2018
  2. BLINCYTO [Suspect]
     Active Substance: BLINATUMOMAB
     Dosage: 28 MCG, QD (CYCLE 2, 10 ML/HR FOR 24 HOUR)
     Route: 065
     Dates: start: 201802, end: 2018
  3. BLINCYTO [Suspect]
     Active Substance: BLINATUMOMAB
     Indication: B PRECURSOR TYPE ACUTE LEUKAEMIA
     Dosage: 9 MCG, QD (WEAK 1 10ML/HR FOR 24 HOUR)
     Route: 065
     Dates: start: 20171222
  4. PARACETAMOL [Concomitant]
     Active Substance: ACETAMINOPHEN
     Dosage: 1 G, UNK
  5. DEXAMETHASONE. [Concomitant]
     Active Substance: DEXAMETHASONE
     Dosage: 20 MG, UNK
     Route: 042
  6. METILPREDNISOLONE [Concomitant]
     Active Substance: METHYLPREDNISOLONE
     Dosage: 80 MG, UNK
  7. BLINCYTO [Suspect]
     Active Substance: BLINATUMOMAB
     Dosage: 28 MCG, QD (WEEK 2, 10 ML/HR FOR 24 HOUR)
     Route: 065
     Dates: end: 2018
  8. BLINCYTO [Suspect]
     Active Substance: BLINATUMOMAB
     Dosage: 28 MCG, QD (CYCLE 3, 10 ML/HR FOR 24 HOUR)
     Route: 065
     Dates: start: 201803

REACTIONS (7)
  - Weight increased [Unknown]
  - Bone disorder [Unknown]
  - Febrile neutropenia [Unknown]
  - Renal failure [Unknown]
  - Delirium [Recovered/Resolved]
  - Nervous system disorder [Unknown]
  - Transaminases increased [Unknown]

NARRATIVE: CASE EVENT DATE: 20171226
